FAERS Safety Report 19027104 (Version 1)
Quarter: 2021Q1

REPORT INFORMATION
  Report Type: Report from Study
  Country: CA (occurrence: CA)
  Receive Date: 20210318
  Receipt Date: 20210318
  Transmission Date: 20210420
  Serious: Yes (Other)
  Sender: FDA-Public Use
  Company Number: CA-JNJFOC-20210328556

PATIENT
  Age: 14 Year
  Sex: Male
  Weight: 49 kg

DRUGS (1)
  1. REMICADE [Suspect]
     Active Substance: INFLIXIMAB
     Indication: COLITIS ULCERATIVE
     Dosage: ON 15?MAR?2021, THE PATIENT RECEIVED 7TH INFLIXIMAB INFUSION OF DOSE 400 MG.
     Route: 042
     Dates: start: 20201009

REACTIONS (5)
  - Abdominal pain [Not Recovered/Not Resolved]
  - General physical health deterioration [Unknown]
  - Diarrhoea [Not Recovered/Not Resolved]
  - Haematochezia [Not Recovered/Not Resolved]
  - Fatigue [Not Recovered/Not Resolved]

NARRATIVE: CASE EVENT DATE: 20210308
